FAERS Safety Report 24784285 (Version 3)
Quarter: 2025Q1

REPORT INFORMATION
  Report Type: Spontaneous
  Country: US (occurrence: US)
  Receive Date: 20241227
  Receipt Date: 20250106
  Transmission Date: 20250409
  Serious: No
  Sender: PFIZER
  Company Number: US-PFIZER INC-202400329076

PATIENT
  Age: 20 Year
  Sex: Female

DRUGS (2)
  1. CIBINQO [Suspect]
     Active Substance: ABROCITINIB
     Indication: Eczema
  2. CIBINQO [Suspect]
     Active Substance: ABROCITINIB

REACTIONS (2)
  - Therapeutic product effect incomplete [Unknown]
  - Therapeutic response unexpected [Unknown]
